FAERS Safety Report 9047489 (Version 1)
Quarter: 2013Q1

REPORT INFORMATION
  Report Type: Report from Study
  Country: US (occurrence: US)
  Receive Date: 20130201
  Receipt Date: 20130201
  Transmission Date: 20140127
  Serious: No
  Sender: FDA-Public Use
  Company Number: US-ABBOTT-12P-163-1026683-00

PATIENT
  Age: 61 Year
  Sex: Female

DRUGS (10)
  1. HUMIRA [Suspect]
     Indication: COLITIS ULCERATIVE
     Route: 058
     Dates: start: 20121123
  2. METFORMIN [Concomitant]
     Indication: DIABETES MELLITUS
     Route: 048
  3. 6-MP [Concomitant]
     Indication: COLITIS ULCERATIVE
     Route: 048
  4. GEMFIBROZIL [Concomitant]
     Indication: BLOOD TRIGLYCERIDES INCREASED
     Route: 048
  5. LISINOPRIL [Concomitant]
     Indication: HYPERTENSION
     Route: 048
  6. VITAMIN [Concomitant]
     Indication: SUPPLEMENTATION THERAPY
     Dosage: DAILY
     Route: 048
  7. IRON [Concomitant]
     Indication: ANAEMIA
     Route: 048
  8. BABY ASPIRIN [Concomitant]
     Indication: CARDIAC DISORDER
     Route: 048
  9. CALCIUM [Concomitant]
     Indication: OSTEOPOROSIS
     Route: 048
  10. VITAMIN C [Concomitant]
     Indication: SUPPLEMENTATION THERAPY
     Route: 048

REACTIONS (3)
  - Swelling [Not Recovered/Not Resolved]
  - Incorrect storage of drug [Unknown]
  - Pain in jaw [Not Recovered/Not Resolved]
